FAERS Safety Report 4366914-6 (Version None)
Quarter: 2004Q2

REPORT INFORMATION
  Report Type: 
  Country: None (occurrence: None)
  Receive Date: 20040526
  Receipt Date: 20040526
  Transmission Date: 20050107
  Serious: Yes (Hospitalization)
  Sender: FDA-Public Use
  Company Number: None

PATIENT
  Age: 67 Year
  Sex: Male
  Weight: 83.2351 kg

DRUGS (4)
  1. GEMCITABINE [Suspect]
     Indication: PANCREATIC CARCINOMA
     Dosage: 1070 MG IV Q WK
     Route: 042
     Dates: start: 20031125
  2. GEMCITABINE [Suspect]
     Indication: PANCREATIC CARCINOMA
     Dosage: 1070 MG IV Q WK
     Route: 042
     Dates: start: 20031204
  3. GEMCITABINE [Suspect]
     Indication: PANCREATIC CARCINOMA
     Dosage: 1070 MG IV Q WK
     Route: 042
     Dates: start: 20031211
  4. RADIATION THERAPY [Concomitant]

REACTIONS (5)
  - ATRIAL FIBRILLATION [None]
  - GASTROINTESTINAL HAEMORRHAGE [None]
  - NAUSEA [None]
  - PLATELET COUNT DECREASED [None]
  - VOMITING [None]
